FAERS Safety Report 20429187 (Version 1)
Quarter: 2022Q1

REPORT INFORMATION
  Report Type: Spontaneous
  Country: US (occurrence: None)
  Receive Date: 20220203
  Receipt Date: 20220203
  Transmission Date: 20220423
  Serious: Yes (Hospitalization)
  Sender: FDA-Public Use
  Company Number: None

PATIENT
  Age: 63 Year
  Sex: Female
  Weight: 99.8 kg

DRUGS (2)
  1. APIXABAN [Suspect]
     Active Substance: APIXABAN
     Indication: Cerebrovascular accident
     Dosage: FREQUENCY : TWICE A DAY;?
     Route: 048
     Dates: start: 20200601, end: 20211027
  2. ASPIRIN [Concomitant]
     Active Substance: ASPIRIN
     Dates: start: 20200601

REACTIONS (4)
  - Gastrointestinal haemorrhage [None]
  - Anticoagulation drug level above therapeutic [None]
  - Duodenal ulcer [None]
  - Gastritis erosive [None]

NARRATIVE: CASE EVENT DATE: 20211027
